FAERS Safety Report 22287990 (Version 1)
Quarter: 2023Q2

REPORT INFORMATION
  Report Type: Report from Study
  Country: AR (occurrence: AR)
  Receive Date: 20230505
  Receipt Date: 20230505
  Transmission Date: 20230722
  Serious: Yes (Other)
  Sender: FDA-Public Use
  Company Number: AR-JNJFOC-20230501715

PATIENT
  Age: 65 Year
  Sex: Female
  Weight: 62 kg

DRUGS (1)
  1. SIMPONI [Suspect]
     Active Substance: GOLIMUMAB
     Indication: Rheumatoid arthritis
     Route: 058
     Dates: start: 20221205

REACTIONS (4)
  - Shoulder fracture [Unknown]
  - Fall [Unknown]
  - Swelling [Unknown]
  - Eye contusion [Unknown]

NARRATIVE: CASE EVENT DATE: 20230420
